FAERS Safety Report 8694447 (Version 5)
Quarter: 2012Q4

REPORT INFORMATION
  Report Type: Report from Study
  Country: DE (occurrence: DE)
  Receive Date: 20120731
  Receipt Date: 20121017
  Transmission Date: 20130627
  Serious: Yes (Death, Life-Threatening, Other)
  Sender: FDA-Public Use
  Company Number: DE-CELGENEUS-062-21880-12072609

PATIENT
  Age: 70 Year
  Sex: Male
  Weight: 79 kg

DRUGS (23)
  1. REVLIMID [Suspect]
     Indication: MULTIPLE MYELOMA
     Dosage: 25 Milligram
     Route: 048
     Dates: start: 20100519, end: 20120220
  2. REVLIMID [Suspect]
     Indication: MDS
     Dosage: 15 Milligram
     Route: 048
     Dates: start: 20120227, end: 20120311
  3. DEXAMETHASONE [Suspect]
     Indication: MULTIPLE MYELOMA
     Route: 048
     Dates: start: 20100519, end: 20100525
  4. DEXAMETHASONE [Suspect]
     Indication: MDS
     Dosage: 60 mg/monthly
     Route: 048
     Dates: start: 20100601, end: 20100621
  5. DEXAMETHASONE [Suspect]
     Dosage: 80 mg/monthly
     Route: 048
     Dates: start: 20100624, end: 20100920
  6. DEXAMETHASONE [Suspect]
     Dosage: 40 mg/monthly
     Route: 048
     Dates: start: 20101002, end: 20101102
  7. DEXAMETHASONE [Suspect]
     Dosage: 80 mg/monthly
     Route: 048
     Dates: start: 20101106, end: 20120113
  8. DEXAMETHASONE [Suspect]
     Route: 048
     Dates: start: 20120109
  9. DEXAMETHASONE [Suspect]
     Route: 048
     Dates: end: 20120321
  10. TAMBOCOR [Concomitant]
     Indication: CARDIAC ARRHYTHMIA
     Dosage: 200 Milligram
     Route: 048
     Dates: start: 20101012, end: 20120321
  11. TAMBOCOR [Concomitant]
     Indication: ATRIAL FIBRILLATION
     Route: 065
     Dates: start: 200212
  12. BELOC ZOK [Concomitant]
     Indication: CARDIAC ARRHYTHMIA
     Dosage: 47.5 Milligram
     Route: 048
     Dates: start: 20100119, end: 20120321
  13. PANTOZOL [Concomitant]
     Indication: PROPHYLAXIS
     Dosage: 40 Milligram
     Route: 048
     Dates: start: 20101012, end: 20120321
  14. PLATELETS [Concomitant]
     Indication: DRUG USE FOR UNKNOWN INDICATION
     Dosage: transfusion
     Route: 065
     Dates: start: 20120316
  15. PLATELETS [Concomitant]
     Dosage: transfusion
     Route: 065
     Dates: start: 20120220
  16. PLATELETS [Concomitant]
     Dosage: transfusion
     Route: 065
     Dates: start: 20120213
  17. PLATELETS [Concomitant]
     Dosage: transfusion
     Route: 065
     Dates: start: 20120206
  18. PLATELETS [Concomitant]
     Dosage: transfusion
     Route: 065
     Dates: start: 20120125
  19. RED BLOOD CELLS [Concomitant]
     Indication: DRUG USE FOR UNKNOWN INDICATION
     Dosage: transfusion
     Route: 065
     Dates: start: 20120316
  20. RED BLOOD CELLS [Concomitant]
     Dosage: transfusion
     Route: 065
     Dates: start: 20120220
  21. RED BLOOD CELLS [Concomitant]
     Dosage: transfusion
     Route: 065
     Dates: start: 20120213
  22. RED BLOOD CELLS [Concomitant]
     Dosage: transfusion
     Route: 065
     Dates: start: 20120206
  23. RED BLOOD CELLS [Concomitant]
     Dosage: transfusion
     Route: 065
     Dates: start: 20120125

REACTIONS (2)
  - Refractory cytopenia with multilineage dysplasia [Fatal]
  - Cardiac arrest [Fatal]
